FAERS Safety Report 9506404 (Version 2)
Quarter: 2014Q1

REPORT INFORMATION
  Report Type: Spontaneous
  Country: US (occurrence: None)
  Receive Date: 20130301
  Receipt Date: 20140304
  Transmission Date: 20141002
  Serious: Yes (Hospitalization, Other)
  Sender: FDA-Public Use
  Company Number: RB-42213-2012

PATIENT
  Sex: Male
  Weight: 3.7 kg

DRUGS (3)
  1. SUBUTEX [Suspect]
     Indication: DRUG DEPENDENCE
     Route: 064
     Dates: start: 201012, end: 20120704
  2. BUPRENORPHINE 8 MG (NONE) [Suspect]
     Indication: DRUG DEPENDENCE
     Dates: start: 2011
  3. SUBOXONE (8 MG, 8 MG) [Suspect]
     Indication: DRUG DEPENDENCE
     Dosage: 8 MG, PATERNAL EXPOSURE TRANSPLACENTAL
     Route: 064
     Dates: end: 20120704

REACTIONS (5)
  - Drug withdrawal syndrome neonatal [None]
  - Foetal exposure during pregnancy [None]
  - Exposure during breast feeding [None]
  - Exposure via body fluid [None]
  - Bradycardia neonatal [None]
